FAERS Safety Report 6850243-2 (Version None)
Quarter: 2010Q3

REPORT INFORMATION
  Report Type: 
  Country: None (occurrence: None)
  Receive Date: 20100716
  Receipt Date: 20071013
  Transmission Date: 20110219
  Serious: No
  Sender: FDA-Public Use
  Company Number: US-PFIZER INC-2007087168

PATIENT
  Sex: Female
  Weight: 68.2 kg

DRUGS (6)
  1. CHANTIX [Suspect]
     Indication: SMOKING CESSATION THERAPY
     Dates: start: 20071011
  2. VALSARTAN [Concomitant]
  3. LEXAPRO [Concomitant]
  4. MONTELUKAST SODIUM [Concomitant]
  5. METFORMIN HCL [Concomitant]
     Indication: DIABETES MELLITUS
  6. BYETTA [Concomitant]
     Indication: DIABETES MELLITUS

REACTIONS (1)
  - METRORRHAGIA [None]
